FAERS Safety Report 11076757 (Version 2)
Quarter: 2015Q2

REPORT INFORMATION
  Report Type: Spontaneous
  Country: PL (occurrence: PL)
  Receive Date: 20150429
  Receipt Date: 20150602
  Transmission Date: 20150821
  Serious: Yes (Hospitalization)
  Sender: FDA-Public Use
  Company Number: PL-NOVOPROD-447032

PATIENT
  Age: 63 Year
  Sex: Female
  Weight: 84 kg

DRUGS (5)
  1. HEPATIL [Concomitant]
     Dosage: UNK
     Route: 048
  2. EUTHYROX [Concomitant]
     Active Substance: LEVOTHYROXINE SODIUM
     Route: 048
  3. STORVAS [Concomitant]
     Dosage: UNK
     Route: 048
  4. NOVOMIX 30 PENFILL [Suspect]
     Active Substance: INSULIN ASPART
     Indication: TYPE 2 DIABETES MELLITUS
     Dosage: 38 U, QD (20 UNITS IN THE MORNING AND 18 UNITS IN THE EVENING)
     Route: 065
     Dates: start: 2015, end: 20150421
  5. AXTIL [Concomitant]
     Dosage: UNK
     Route: 048

REACTIONS (4)
  - Diarrhoea [Recovered/Resolved]
  - Heart rate increased [Recovered/Resolved]
  - Malaise [Recovered/Resolved]
  - Vomiting [Recovered/Resolved]

NARRATIVE: CASE EVENT DATE: 20150418
